FAERS Safety Report 8468803-4 (Version None)
Quarter: 2012Q2

REPORT INFORMATION
  Report Type: 
  Country: None (occurrence: None)
  Receive Date: 20120619
  Receipt Date: 20120606
  Transmission Date: 20120825
  Serious: Yes (Other)
  Sender: FDA-Public Use
  Company Number: 2012-000637

PATIENT
  Age: 60 Year
  Sex: Female

DRUGS (17)
  1. ACTONEL [Suspect]
     Indication: OSTEOPENIA
     Dosage: 35 MG, ONCE WEEKLY, ORAL
     Route: 048
     Dates: start: 20080301, end: 20100201
  2. MULTIVITAMIN /00097801/ (ASCORBIC ACID, CALCIUM PANTOTHENATE, ERGOCALC [Concomitant]
  3. PATANOL [Concomitant]
  4. METHYLPREDNISOLONE [Concomitant]
  5. AUGMENTIN /00756801/ (AMOXICILLIN SODIUM, CLAVULANATE POTASSIUM) [Concomitant]
  6. FOSAMAX [Suspect]
     Indication: OSTEOPENIA
     Dosage: 70 MG ONCE WEEKLY, ORAL
     Route: 048
  7. VAGIFEM [Concomitant]
  8. GABAPENTIN [Concomitant]
  9. SYNTHROID [Concomitant]
  10. VITAMIN D [Concomitant]
  11. MULTIVITAMIN AND MINERAL SUPPLEMENT (MINERALS NOS, VITAMINS NOS) [Concomitant]
  12. SCOPOLAMINE /00008701/ (HYOSCINE) [Concomitant]
  13. CALCIUM CARBONATE [Concomitant]
  14. VALTREX (VALACICLVIR HYDROCHLORIDE) [Concomitant]
  15. ACTONEL [Suspect]
     Indication: OSTEOPENIA
     Dosage: 150 MG ONCE WEEKLY, ORAL
     Route: 048
     Dates: start: 20080915
  16. ESTRACE [Concomitant]
  17. FEXOFENADINE HCL [Concomitant]

REACTIONS (19)
  - PAIN IN EXTREMITY [None]
  - DYSPHAGIA [None]
  - RADICULOPATHY [None]
  - FEMUR FRACTURE [None]
  - PAIN [None]
  - STRESS [None]
  - BONE DISORDER [None]
  - MONOCLONAL GAMMOPATHY [None]
  - BUNION [None]
  - BURSITIS [None]
  - ADRENAL ADENOMA [None]
  - STRESS FRACTURE [None]
  - ARTHRALGIA [None]
  - LOW TURNOVER OSTEOPATHY [None]
  - OSTEOARTHRITIS [None]
  - MUSCLE TIGHTNESS [None]
  - GAIT DISTURBANCE [None]
  - BONE MARROW OEDEMA [None]
  - BLOOD IMMUNOGLOBULIN M INCREASED [None]
